FAERS Safety Report 7736815-1 (Version None)
Quarter: 2011Q3

REPORT INFORMATION
  Report Type: 
  Country: None (occurrence: None)
  Receive Date: 20110908
  Receipt Date: 20110908
  Transmission Date: 20111222
  Serious: No
  Sender: FDA-Public Use
  Company Number: None

PATIENT
  Sex: Male

DRUGS (1)
  1. GAMUNEX [Suspect]
     Indication: POLYNEUROPATHY
     Dosage: 1GM/KG -WGT = 230LBS-
     Route: 042

REACTIONS (1)
  - RASH [None]
